FAERS Safety Report 7277200-9 (Version None)
Quarter: 2011Q1

REPORT INFORMATION
  Report Type: 
  Country: None (occurrence: None)
  Receive Date: 20110202
  Receipt Date: 20110202
  Transmission Date: 20110831
  Serious: Yes (Other)
  Sender: FDA-Public Use
  Company Number: None

PATIENT
  Age: 57 Year
  Sex: Female
  Weight: 109.3169 kg

DRUGS (14)
  1. GLIPIZIDE CR -GLUCOTROL XL- [Concomitant]
  2. INSULIN PEN NEEDLE [Concomitant]
  3. VICTOZA [Suspect]
     Indication: TYPE 2 DIABETES MELLITUS
     Dosage: 0.6 MG QDAY SQ; 1.2 MG AND 1.8 MG QDAY SQ
     Dates: start: 20100622, end: 20100629
  4. VICTOZA [Suspect]
     Indication: TYPE 2 DIABETES MELLITUS
     Dosage: 0.6 MG QDAY SQ; 1.2 MG AND 1.8 MG QDAY SQ
     Dates: start: 20100630, end: 20101222
  5. GLUCOPHAGE [Concomitant]
  6. IRBESARTAN-HYDROCHLOROTHIAZIDE -AVALIDE- [Concomitant]
  7. TRAVATAN [Concomitant]
  8. LEXAPRO [Concomitant]
  9. NYSTATIN [Concomitant]
  10. ASPIRIN [Concomitant]
  11. LEVOTHYROXINE -LEVOXYL- [Concomitant]
  12. CALCIUM CITRATE-VITAMIN D -CITRACAL+D- [Concomitant]
  13. PANTOPRAZOLE EC -PROTONIX- [Concomitant]
  14. CLOTRIMAZOLE-BETAMETHASONE -LOTRISONE- [Concomitant]

REACTIONS (2)
  - ASPARTATE AMINOTRANSFERASE INCREASED [None]
  - ALANINE AMINOTRANSFERASE INCREASED [None]
